FAERS Safety Report 4925932-7 (Version None)
Quarter: 2006Q1

REPORT INFORMATION
  Report Type: 
  Country: None (occurrence: None)
  Receive Date: 20060228
  Receipt Date: 20050418
  Transmission Date: 20060701
  Serious: No
  Sender: FDA-Public Use
  Company Number: US-GLAXOSMITHKLINE-A0554501A

PATIENT
  Sex: Female

DRUGS (1)
  1. LAMICTAL [Suspect]
     Indication: PARTIAL SEIZURES
     Dosage: 150MG THREE TIMES PER DAY
     Route: 048
     Dates: start: 20010901

REACTIONS (2)
  - BREATH ODOUR [None]
  - URINE ODOUR ABNORMAL [None]
